FAERS Safety Report 7281563-8 (Version None)
Quarter: 2011Q1

REPORT INFORMATION
  Report Type: 
  Country: None (occurrence: None)
  Receive Date: 20110208
  Receipt Date: 20110204
  Transmission Date: 20110831
  Serious: Yes (Death)
  Sender: FDA-Public Use
  Company Number: PE-PFIZER INC-2011027207

PATIENT
  Age: 81 Year
  Sex: Female

DRUGS (1)
  1. LOPID [Suspect]
     Indication: DYSLIPIDAEMIA
     Dosage: 900 MG, 1X/DAY
     Route: 048
     Dates: start: 20090113

REACTIONS (1)
  - DEATH [None]
